FAERS Safety Report 11811713 (Version 1)
Quarter: 2015Q4

REPORT INFORMATION
  Report Type: Spontaneous
  Country: FR (occurrence: FR)
  Receive Date: 20151208
  Receipt Date: 20151208
  Transmission Date: 20160305
  Serious: Yes (Hospitalization)
  Sender: FDA-Public Use
  Company Number: FR-TEVA-615583ISR

PATIENT
  Age: 20 Year
  Sex: Female

DRUGS (5)
  1. DOLIPRANE [Suspect]
     Active Substance: ACETAMINOPHEN
     Dosage: 4 DOSAGE FORMS DAILY;
     Route: 048
     Dates: start: 20151018, end: 20151018
  2. TARDYFERON [Concomitant]
     Active Substance: FERROUS SULFATE\FOLIC ACID
     Dosage: 4 DOSAGE FORMS DAILY;
     Dates: start: 20151018, end: 20151018
  3. SPASFON (PHLOROGLUCINOL, TRIMETHYLPHLOROGLUCINOL) [Suspect]
     Active Substance: PHLOROGLUCINOL\1,3,5-TRIMETHOXYBENZENE
     Dosage: 6 DOSAGE FORMS DAILY;
     Dates: start: 20151018
  4. ANTADYS 100 MG [Suspect]
     Active Substance: FLURBIPROFEN
     Dosage: 15 DOSAGE FORMS DAILY;
     Route: 048
     Dates: start: 20151018, end: 20151018
  5. IBUPROFENE 200 MG [Suspect]
     Active Substance: IBUPROFEN
     Dosage: 19 DOSAGE FORMS DAILY;
     Route: 048
     Dates: start: 20151018, end: 20151018

REACTIONS (1)
  - Prothrombin time shortened [Recovered/Resolved]

NARRATIVE: CASE EVENT DATE: 20151019
